FAERS Safety Report 7493150-7 (Version None)
Quarter: 2011Q2

REPORT INFORMATION
  Report Type: 
  Country: None (occurrence: None)
  Receive Date: 20110520
  Receipt Date: 20110513
  Transmission Date: 20111010
  Serious: No
  Sender: FDA-Public Use
  Company Number: US-PFIZER INC-2011103521

PATIENT
  Sex: Female

DRUGS (6)
  1. DIAPAM [Concomitant]
     Dosage: UNK
  2. KAPIDEX [Concomitant]
     Indication: DIAPHRAGMATIC HERNIA
     Dosage: UNK
  3. MOBIC [Concomitant]
     Dosage: UNK
  4. EPLERENONE [Suspect]
     Indication: CROHN'S DISEASE
     Dosage: 25 MG, ONCE A DAY
     Route: 048
     Dates: start: 20110401
  5. VALIUM [Suspect]
     Dosage: UNK
  6. ALDACTONE [Suspect]
     Dosage: UNK

REACTIONS (1)
  - ALOPECIA [None]
